FAERS Safety Report 14563159 (Version 1)
Quarter: 2018Q1

REPORT INFORMATION
  Report Type: Spontaneous
  Country: RU (occurrence: RU)
  Receive Date: 20180222
  Receipt Date: 20180222
  Transmission Date: 20180509
  Serious: Yes (Other)
  Sender: FDA-Public Use
  Company Number: RU-ASTRAZENECA-2018SE20478

PATIENT
  Age: 82 Year
  Sex: Female

DRUGS (3)
  1. NOLIPREL [Concomitant]
  2. BRILINTA [Suspect]
     Active Substance: TICAGRELOR
     Indication: MYOCARDIAL INFARCTION
     Route: 048
  3. BRILINTA [Suspect]
     Active Substance: TICAGRELOR
     Indication: MYOCARDIAL INFARCTION
     Route: 048
     Dates: end: 201712

REACTIONS (5)
  - Gastrointestinal ulcer haemorrhage [Recovered/Resolved]
  - Off label use [Unknown]
  - Arrhythmia [Unknown]
  - Pruritus allergic [Recovered/Resolved]
  - Intentional product misuse [Unknown]

NARRATIVE: CASE EVENT DATE: 201712
